FAERS Safety Report 4661819-5 (Version None)
Quarter: 2005Q2

REPORT INFORMATION
  Report Type: 
  Country: None (occurrence: None)
  Receive Date: 20050512
  Receipt Date: 20050512
  Transmission Date: 20051028
  Serious: No
  Sender: FDA-Public Use
  Company Number: None

PATIENT
  Age: 34 Year
  Sex: Female

DRUGS (1)
  1. BUPIVACAINE HCL 0.75 % IN DEXTROSE 8.25 % ABBOTT LABORATORIES [Suspect]
     Indication: SPINAL ANAESTHESIA
     Dosage: 2 ML
     Dates: start: 20050511

REACTIONS (1)
  - ANAESTHETIC COMPLICATION [None]
